FAERS Safety Report 4989823-8 (Version None)
Quarter: 2006Q2

REPORT INFORMATION
  Report Type: 
  Country: None (occurrence: None)
  Receive Date: 20060501
  Receipt Date: 20060411
  Transmission Date: 20061013
  Serious: Yes (Other)
  Sender: FDA-Public Use
  Company Number: 802#1#2006-00002

PATIENT
  Age: 63 Year
  Sex: Male

DRUGS (5)
  1. SUGIRAN (ALPROSTADIL (PAOD)) [Suspect]
     Indication: ARTERIOPATHIC DISEASE
     Dosage: 60 MCG (20 MCG 3 IN 1 DAY (S) )
     Route: 042
     Dates: start: 20060104, end: 20060203
  2. FUROSEMIDE [Concomitant]
  3. TRIFLUSAL (TRIFLUSAL) [Concomitant]
  4. CAPTOPRIL [Concomitant]
  5. PENTOXIFYLLINE [Concomitant]

REACTIONS (3)
  - INFUSION SITE INFLAMMATION [None]
  - INFUSION SITE PAIN [None]
  - INFUSION SITE PHLEBITIS [None]
